FAERS Safety Report 8341779-6 (Version None)
Quarter: 2012Q2

REPORT INFORMATION
  Report Type: 
  Country: None (occurrence: None)
  Receive Date: 20120503
  Receipt Date: 20120419
  Transmission Date: 20120825
  Serious: Yes (Death)
  Sender: FDA-Public Use
  Company Number: JPI-P-021026

PATIENT
  Age: 40 Year
  Sex: Male

DRUGS (2)
  1. XYREM [Suspect]
     Indication: NARCOLEPSY
     Dosage: 4.5 GM (2.25 GM, 2 IN 1 D), ORAL, (UNKNOWN), ORAL, 9 GM (4.5 GM, 2 IN 1 D), ORAL
     Route: 048
     Dates: start: 20110429
  2. XYREM [Suspect]
     Indication: NARCOLEPSY
     Dosage: 4.5 GM (2.25 GM, 2 IN 1 D), ORAL, (UNKNOWN), ORAL, 9 GM (4.5 GM, 2 IN 1 D), ORAL
     Route: 048
     Dates: start: 20110721

REACTIONS (11)
  - DRUG INEFFECTIVE [None]
  - MICTURITION URGENCY [None]
  - LOWER LIMB FRACTURE [None]
  - HANGOVER [None]
  - JOINT DISLOCATION [None]
  - MULTIPLE FRACTURES [None]
  - UPPER LIMB FRACTURE [None]
  - HIP ARTHROPLASTY [None]
  - FALL [None]
  - INSOMNIA [None]
  - LIGAMENT SPRAIN [None]
